FAERS Safety Report 20870047 (Version 1)
Quarter: 2022Q2

REPORT INFORMATION
  Report Type: Spontaneous
  Country: CN (occurrence: US)
  Receive Date: 20220525
  Receipt Date: 20220525
  Transmission Date: 20220720
  Serious: Yes (Other)
  Sender: FDA-Public Use
  Company Number: CN-SUN PHARMACEUTICAL INDUSTRIES LTD-2022R1-337531

PATIENT
  Age: 64 Year
  Sex: Female

DRUGS (3)
  1. CARBOPLATIN [Suspect]
     Active Substance: CARBOPLATIN
     Indication: Lung adenocarcinoma stage IV
     Dosage: UNK (AUC-TIME CURVE 5MG/ML PER MIN) ON DAY 1 EVERY 3 WEEKS
     Route: 042
  2. PEMETREXED [Suspect]
     Active Substance: PEMETREXED
     Indication: Lung adenocarcinoma stage IV
     Dosage: 500 MILLIGRAM/SQ. METER;2 CYCLES; ON DAY 1 EVERY 3 WEEEKS
     Route: 042
  3. BEVACIZUMAB [Concomitant]
     Active Substance: BEVACIZUMAB
     Indication: Lung adenocarcinoma stage IV
     Dosage: 7.5 MILLIGRAM/KILOGRAM ON DAY 1 EVERY 3 WEEKS
     Route: 042

REACTIONS (1)
  - Condition aggravated [Unknown]
